FAERS Safety Report 4744113-3 (Version None)
Quarter: 2005Q3

REPORT INFORMATION
  Report Type: 
  Country: None (occurrence: None)
  Receive Date: 20050812
  Receipt Date: 20050805
  Transmission Date: 20060218
  Serious: Yes (Other)
  Sender: FDA-Public Use
  Company Number: US-JNJFOC-20041103870

PATIENT
  Sex: Male
  Weight: 70.31 kg

DRUGS (7)
  1. DURAGESIC-100 [Suspect]
     Route: 062
     Dates: start: 20010101
  2. OXYCODONE [Concomitant]
  3. ROXICET [Concomitant]
  4. ROXICET [Concomitant]
  5. NEURONTIN [Concomitant]
  6. DIAZEPAM [Concomitant]
  7. TAMAZEPINE [Concomitant]

REACTIONS (13)
  - ALOPECIA [None]
  - BONE NEOPLASM MALIGNANT [None]
  - BURNING SENSATION [None]
  - CONFUSIONAL STATE [None]
  - DYSPHAGIA [None]
  - GROIN PAIN [None]
  - HYPERHIDROSIS [None]
  - LOSS OF CONSCIOUSNESS [None]
  - PYREXIA [None]
  - SKIN EXFOLIATION [None]
  - THERAPEUTIC RESPONSE DECREASED [None]
  - THROAT TIGHTNESS [None]
  - WEIGHT DECREASED [None]
